FAERS Safety Report 4998436-3 (Version None)
Quarter: 2006Q2

REPORT INFORMATION
  Report Type: 
  Country: None (occurrence: None)
  Receive Date: 20060510
  Receipt Date: 20060504
  Transmission Date: 20061013
  Serious: Yes (Hospitalization)
  Sender: FDA-Public Use
  Company Number: CA-GLAXOSMITHKLINE-A0604904A

PATIENT
  Age: 37 Year
  Sex: Female

DRUGS (1)
  1. AMERGE [Suspect]
     Indication: MIGRAINE
     Dosage: 2.5MG SINGLE DOSE
     Route: 065
     Dates: start: 20060502, end: 20060502

REACTIONS (4)
  - APHASIA [None]
  - HEMIPLEGIA [None]
  - PAIN IN EXTREMITY [None]
  - SWOLLEN TONGUE [None]
